FAERS Safety Report 8933428 (Version 4)
Quarter: 2014Q1

REPORT INFORMATION
  Report Type: Spontaneous
  Country: GB (occurrence: GB)
  Receive Date: 20121128
  Receipt Date: 20140328
  Transmission Date: 20141002
  Serious: Yes (Death, Life-Threatening)
  Sender: FDA-Public Use
  Company Number: GB-CELGENEUS-167-21880-12113133

PATIENT
  Age: 74 Year
  Sex: Male
  Weight: 72.4 kg

DRUGS (2)
  1. REVLIMID [Suspect]
     Indication: PRODUCT USED FOR UNKNOWN INDICATION
     Dosage: 10 MILLIGRAM
     Route: 048
     Dates: start: 20110810, end: 20120810
  2. ANTICOAGULATION AGENTS [Concomitant]
     Indication: THROMBOSIS PROPHYLAXIS
     Route: 065

REACTIONS (1)
  - Acute myeloid leukaemia [Fatal]
